FAERS Safety Report 13678718 (Version 1)
Quarter: 2017Q2

REPORT INFORMATION
  Report Type: Spontaneous
  Country: US (occurrence: US)
  Receive Date: 20170622
  Receipt Date: 20170622
  Transmission Date: 20170830
  Serious: No
  Sender: FDA-Public Use
  Company Number: US-SA-2017SA065865

PATIENT
  Age: 7 Year
  Sex: Male
  Weight: 21 kg

DRUGS (8)
  1. EPIPEN [Concomitant]
     Active Substance: EPINEPHRINE
     Indication: ANAPHYLACTIC REACTION
     Route: 030
     Dates: start: 20161102
  2. PREDNISOLONE. [Concomitant]
     Active Substance: PREDNISOLONE
     Route: 048
     Dates: start: 20160226
  3. CEREZYME [Suspect]
     Active Substance: IMIGLUCERASE
     Indication: LIPIDOSIS
     Dosage: DOSE:76.19 UNIT(S)/KILOGRAM BODYWEIGHT
     Route: 041
  4. NORMAL SALINE [Concomitant]
     Active Substance: SODIUM CHLORIDE
     Route: 042
     Dates: start: 20161102
  5. LMX 5 [Concomitant]
     Route: 061
     Dates: start: 20161102
  6. CEREZYME [Suspect]
     Active Substance: IMIGLUCERASE
     Indication: GAUCHER^S DISEASE
     Dosage: DOSE:76.19 UNIT(S)/KILOGRAM BODYWEIGHT
     Route: 041
  7. ZYRTEC [Concomitant]
     Active Substance: CETIRIZINE HYDROCHLORIDE
     Route: 048
     Dates: start: 20160226
  8. ALBUTEROL. [Concomitant]
     Active Substance: ALBUTEROL
     Dates: start: 20160215

REACTIONS (1)
  - Upper respiratory tract infection [Unknown]
